FAERS Safety Report 19739089 (Version 1)
Quarter: 2021Q3

REPORT INFORMATION
  Report Type: Spontaneous
  Country: CN (occurrence: CN)
  Receive Date: 20210824
  Receipt Date: 20210824
  Transmission Date: 20211014
  Serious: Yes (Hospitalization, Other)
  Sender: FDA-Public Use
  Company Number: CN-009507513-2108CHN005705

PATIENT
  Age: 65 Year
  Sex: Male
  Weight: 53 kg

DRUGS (3)
  1. CARBOPLATIN. [Suspect]
     Active Substance: CARBOPLATIN
     Indication: GASTRIC CANCER RECURRENT
     Dosage: 535 MG, ONCE
     Route: 041
     Dates: start: 20210609, end: 20210609
  2. 5 FU [Suspect]
     Active Substance: FLUOROURACIL
     Indication: GASTRIC CANCER RECURRENT
     Dosage: 400 MG PER SQUARE METER, ONCE, ROUTE: PUMP INJECTION
     Dates: start: 20210609, end: 20210609
  3. KEYTRUDA [Suspect]
     Active Substance: PEMBROLIZUMAB
     Indication: GASTRIC CANCER RECURRENT
     Dosage: 200 MG, ONCE
     Route: 041
     Dates: start: 20210609, end: 20210609

REACTIONS (2)
  - Myelosuppression [Recovering/Resolving]
  - Product use in unapproved indication [Unknown]

NARRATIVE: CASE EVENT DATE: 20210609
